FAERS Safety Report 4349955-4 (Version None)
Quarter: 2004Q2

REPORT INFORMATION
  Report Type: 
  Country: None (occurrence: None)
  Receive Date: 20040426
  Receipt Date: 20040414
  Transmission Date: 20050107
  Serious: Yes (Disabling)
  Sender: FDA-Public Use
  Company Number: 04H-163-0257921-00

PATIENT
  Sex: Female

DRUGS (3)
  1. DEMEROL [Suspect]
  2. LOSARTAN POTASSIUM [Concomitant]
  3. ATENOLOL [Concomitant]

REACTIONS (1)
  - BLINDNESS TRANSIENT [None]
